FAERS Safety Report 6346892-0 (Version None)
Quarter: 2009Q3

REPORT INFORMATION
  Report Type: 
  Country: None (occurrence: None)
  Receive Date: 20090909
  Receipt Date: 20090909
  Transmission Date: 20100115
  Serious: Yes (Life-Threatening)
  Sender: FDA-Public Use
  Company Number: None

PATIENT
  Sex: Male
  Weight: 50 kg

DRUGS (1)
  1. LAMICTAL [Suspect]

REACTIONS (1)
  - PRODUCT SUBSTITUTION ISSUE [None]
